FAERS Safety Report 10234590 (Version 2)
Quarter: 2014Q2

REPORT INFORMATION
  Report Type: Spontaneous
  Country: US (occurrence: US)
  Receive Date: 20140613
  Receipt Date: 20140616
  Transmission Date: 20141212
  Serious: Yes (Hospitalization, Other)
  Sender: FDA-Public Use
  Company Number: US-ROCHE-1412966

PATIENT
  Sex: Female

DRUGS (3)
  1. KLONOPIN [Suspect]
     Indication: CONVULSION
     Dosage: STARTED SOMETIME ^89 TO ^91
     Route: 065
  2. KLONOPIN [Suspect]
     Indication: ANXIETY
  3. ALPRAZOLAM [Concomitant]
     Dosage: AS NEEDED AT NIGHT
     Route: 065

REACTIONS (10)
  - Withdrawal syndrome [Unknown]
  - Swollen tongue [Unknown]
  - Dysphagia [Unknown]
  - Cerebrovascular accident [Unknown]
  - Drug dependence [Unknown]
  - Cardiac disorder [Unknown]
  - Back disorder [Unknown]
  - Amnesia [Not Recovered/Not Resolved]
  - Drug ineffective [Unknown]
  - Drug ineffective [Unknown]
